FAERS Safety Report 25363040 (Version 1)
Quarter: 2025Q2

REPORT INFORMATION
  Report Type: Spontaneous
  Country: CN (occurrence: CN)
  Receive Date: 20250527
  Receipt Date: 20250527
  Transmission Date: 20250716
  Serious: Yes (Life-Threatening, Other)
  Sender: PFIZER
  Company Number: CN-PFIZER INC-202500108039

PATIENT
  Sex: Female

DRUGS (1)
  1. METHOTREXATE SODIUM [Suspect]
     Active Substance: METHOTREXATE SODIUM
     Indication: Ectopic pregnancy
     Route: 030

REACTIONS (21)
  - Myelosuppression [Recovered/Resolved]
  - Blood creatinine increased [Recovered/Resolved]
  - Multi-organ disorder [Recovered/Resolved]
  - Brain natriuretic peptide increased [Recovered/Resolved]
  - Transaminases increased [Recovered/Resolved]
  - Renal impairment [Recovered/Resolved]
  - Hepatic function abnormal [Recovered/Resolved]
  - Nausea [Recovered/Resolved]
  - Vomiting [Recovered/Resolved]
  - Mouth ulceration [Recovered/Resolved]
  - Rash [Recovered/Resolved]
  - Pruritus [Recovered/Resolved]
  - Pyrexia [Recovered/Resolved]
  - Oral pain [Recovered/Resolved]
  - Diarrhoea [Recovered/Resolved]
  - Alopecia [Recovered/Resolved]
  - Full blood count decreased [Recovered/Resolved]
  - Hypersensitivity [Recovered/Resolved]
  - Skin reaction [Recovered/Resolved]
  - Eyelid oedema [Recovered/Resolved]
  - Laryngeal oedema [Recovered/Resolved]
